FAERS Safety Report 9407713 (Version 1)
Quarter: 2013Q3

REPORT INFORMATION
  Report Type: Spontaneous
  Country: US (occurrence: None)
  Receive Date: 20130717
  Receipt Date: 20130717
  Transmission Date: 20140515
  Serious: Yes (Life-Threatening, Hospitalization)
  Sender: FDA-Public Use
  Company Number: None

PATIENT
  Age: 70 Year
  Sex: Male
  Weight: 96.2 kg

DRUGS (3)
  1. HEPARIN [Suspect]
     Indication: ATRIAL FIBRILLATION
     Dosage: 1500 UNITS PER HOUR  IV
     Route: 042
     Dates: start: 20130624, end: 20130701
  2. HEPARIN [Suspect]
     Indication: CARDIAC ABLATION
     Dosage: 1500 UNITS PER HOUR  IV
     Route: 042
     Dates: start: 20130624, end: 20130701
  3. ENOXAPARIN [Suspect]
     Indication: ATRIAL FIBRILLATION
     Dosage: 50 MG ONCE SQ
     Route: 058
     Dates: start: 20130626, end: 20130626

REACTIONS (2)
  - Pulmonary embolism [None]
  - Heparin-induced thrombocytopenia [None]
